FAERS Safety Report 11543524 (Version 1)
Quarter: 2015Q3

REPORT INFORMATION
  Report Type: Spontaneous
  Country: US (occurrence: US)
  Receive Date: 20150923
  Receipt Date: 20150923
  Transmission Date: 20151125
  Serious: No
  Sender: FDA-Public Use
  Company Number: US-009507513-1509USA007651

PATIENT
  Age: 47 Year
  Sex: Female

DRUGS (3)
  1. EMEND [Suspect]
     Active Substance: APREPITANT
     Indication: NEOPLASM MALIGNANT
     Dosage: UNK
     Dates: start: 2014
  2. ATIVAN [Concomitant]
     Active Substance: LORAZEPAM
  3. LIDOCAINE. [Concomitant]
     Active Substance: LIDOCAINE

REACTIONS (1)
  - Product use issue [Unknown]
